FAERS Safety Report 5241425-4 (Version None)
Quarter: 2007Q1

REPORT INFORMATION
  Report Type: 
  Country: None (occurrence: None)
  Receive Date: 20070212
  Receipt Date: 20070131
  Transmission Date: 20070707
  Serious: Yes (Hospitalization)
  Sender: FDA-Public Use
  Company Number: WAES 0701USA03227

PATIENT
  Age: 62 Year
  Sex: Male

DRUGS (10)
  1. DECADRON [Suspect]
     Indication: PROPHYLAXIS
     Dosage: 4 MG/BID/PO
     Route: 048
     Dates: start: 20070112, end: 20070114
  2. DECADRON [Suspect]
     Indication: PREMEDICATION
     Dosage: 10 MG/1X/IV
     Route: 042
     Dates: start: 20070111, end: 20070111
  3. CDDP UNK [Suspect]
     Indication: METASTATIC GASTRIC CANCER
     Dosage: 170 MG/IV
     Route: 042
     Dates: start: 20070111, end: 20070111
  4. FLUOROURACIL [Suspect]
     Indication: METASTATIC GASTRIC CANCER
     Dosage: 1780 MG/DAILY/IV
     Route: 042
     Dates: start: 20070111, end: 20070115
  5. COMPAZINE [Concomitant]
  6. EMEND [Concomitant]
  7. ZOFRAN [Concomitant]
  8. HYDROCODONE BITARTRATE [Concomitant]
  9. LORAZEPAM [Concomitant]
  10. ONDANSETRON [Concomitant]

REACTIONS (8)
  - ALANINE AMINOTRANSFERASE INCREASED [None]
  - ASTHENIA [None]
  - BLOOD ALKALINE PHOSPHATASE INCREASED [None]
  - HYPERBILIRUBINAEMIA [None]
  - HYPERGLYCAEMIA [None]
  - METABOLIC ACIDOSIS [None]
  - PROTEIN URINE PRESENT [None]
  - RENAL FAILURE [None]
